FAERS Safety Report 14544969 (Version 1)
Quarter: 2018Q1

REPORT INFORMATION
  Report Type: Spontaneous
  Country: US (occurrence: US)
  Receive Date: 20180216
  Receipt Date: 20180216
  Transmission Date: 20180509
  Serious: No
  Sender: FDA-Public Use
  Company Number: None

PATIENT
  Age: 27 Year
  Sex: Female
  Weight: 99 kg

DRUGS (1)
  1. LEVOTHYROXINE/ LIOTHYRON 120MG TABS [Suspect]
     Active Substance: LEVOTHYROXINE\LIOTHYRONINE
     Indication: HYPOTHYROIDISM
     Dosage: ?          QUANTITY:1 TABLET(S);?
     Route: 048
     Dates: start: 20180202, end: 20180216

REACTIONS (5)
  - Joint injury [None]
  - Loss of consciousness [None]
  - Syncope [None]
  - Limb injury [None]
  - Dizziness [None]

NARRATIVE: CASE EVENT DATE: 20180216
